FAERS Safety Report 4851294-X (Version None)
Quarter: 2005Q4

REPORT INFORMATION
  Report Type: 
  Country: None (occurrence: None)
  Receive Date: 20051212
  Receipt Date: 20051018
  Transmission Date: 20060501
  Serious: Yes (Death, Life-Threatening, Hospitalization)
  Sender: FDA-Public Use
  Company Number: 200518096US

PATIENT
  Sex: Female
  Weight: 73 kg

DRUGS (12)
  1. TAXOTERE [Suspect]
     Indication: BREAST CANCER
     Dates: start: 20051001, end: 20051001
  2. NEURONTIN [Concomitant]
     Dosage: DOSE: UNKNOWN
     Dates: end: 20051025
  3. NEULASTA [Concomitant]
     Dosage: DOSE: UNKNOWN
     Dates: end: 20051025
  4. TOBRAMYCIN [Concomitant]
     Dosage: DOSE: UNKNOWN
     Dates: end: 20051025
  5. CEFIPIME [Concomitant]
     Dosage: DOSE: UNKNOWN
     Dates: end: 20051025
  6. VANCOMYCIN [Concomitant]
     Dosage: DOSE: UNKNOWN
     Dates: end: 20051025
  7. MELOXICAM [Concomitant]
     Dosage: DOSE: UNKNOWN
     Dates: end: 20051025
  8. PROTONIX [Concomitant]
     Dosage: DOSE: UNKNOWN
     Dates: end: 20051025
  9. ZOFRAN [Concomitant]
     Dosage: DOSE: UNKNOWN
     Dates: end: 20051025
  10. SENOKOT [Concomitant]
     Dosage: DOSE: UNKNOWN
     Dates: end: 20051025
  11. ENOXAPARIN [Concomitant]
     Dosage: DOSE: UNKNOWN
     Dates: end: 20051025
  12. DEXAMETHASONE [Concomitant]
     Dosage: DOSE: UNKNOWN
     Dates: end: 20051025

REACTIONS (12)
  - ADVERSE DRUG REACTION [None]
  - AKINESIA [None]
  - ASTHENIA [None]
  - ENCEPHALOPATHY [None]
  - GENERAL PHYSICAL HEALTH DETERIORATION [None]
  - MENTAL IMPAIRMENT [None]
  - MENTAL STATUS CHANGES [None]
  - MULTI-ORGAN FAILURE [None]
  - OEDEMA [None]
  - PERIPHERAL MOTOR NEUROPATHY [None]
  - RENAL FAILURE ACUTE [None]
  - SPEECH DISORDER [None]
